FAERS Safety Report 15963320 (Version 1)
Quarter: 2019Q1

REPORT INFORMATION
  Report Type: Spontaneous
  Country: US (occurrence: US)
  Receive Date: 20190214
  Receipt Date: 20190214
  Transmission Date: 20190417
  Serious: No
  Sender: FDA-Public Use
  Company Number: US-PERRIGO-18US014701

PATIENT
  Sex: Male
  Weight: 72.56 kg

DRUGS (7)
  1. VITAMIN B NOS [Concomitant]
     Active Substance: VITAMIN B
     Indication: SUPPLEMENTATION THERAPY
     Dosage: UNK
     Route: 065
  2. VITAMIN C [Concomitant]
     Active Substance: ASCORBIC ACID
     Indication: SUPPLEMENTATION THERAPY
     Dosage: UNK
     Route: 065
  3. VITAMIN D [Concomitant]
     Active Substance: CHOLECALCIFEROL
     Indication: SUPPLEMENTATION THERAPY
     Dosage: UNK
     Route: 065
  4. CLOPIDOGREL [Concomitant]
     Active Substance: CLOPIDOGREL BISULFATE
     Indication: CARDIAC ASSISTANCE DEVICE USER
     Dosage: UNK
     Route: 065
     Dates: start: 2014
  5. ATORVASTATIN [Concomitant]
     Active Substance: ATORVASTATIN
     Indication: CARDIAC ASSISTANCE DEVICE USER
     Dosage: UNK
     Route: 065
     Dates: start: 2014
  6. RANITIDINE. [Concomitant]
     Active Substance: RANITIDINE
     Indication: GASTROOESOPHAGEAL REFLUX DISEASE
     Dosage: UNK
     Route: 065
  7. DESONIDE. [Suspect]
     Active Substance: DESONIDE
     Indication: RASH
     Dosage: 1 APPLICATION, QD, PRN
     Route: 061
     Dates: end: 201812

REACTIONS (1)
  - Application site dryness [Recovered/Resolved]
